FAERS Safety Report 4589034-4 (Version None)
Quarter: 2005Q1

REPORT INFORMATION
  Report Type: 
  Country: None (occurrence: None)
  Receive Date: 20050125
  Receipt Date: 20041014
  Transmission Date: 20050727
  Serious: No
  Sender: FDA-Public Use
  Company Number: USA041081155

PATIENT
  Age: 76 Year
  Sex: Female
  Weight: 50 kg

DRUGS (4)
  1. FORTEO [Suspect]
     Indication: OSTEOPOROSIS
     Dosage: 20 UG/1 DAY
     Dates: start: 20040311
  2. SYNTHROID [Concomitant]
  3. PLAVIX [Concomitant]
  4. OSCAL (CALCIUM CARBONATE) [Concomitant]

REACTIONS (2)
  - ANOREXIA [None]
  - WEIGHT DECREASED [None]
